FAERS Safety Report 7628637-7 (Version None)
Quarter: 2011Q3

REPORT INFORMATION
  Report Type: 
  Country: None (occurrence: None)
  Receive Date: 20110711
  Receipt Date: 20110624
  Transmission Date: 20111222
  Serious: Yes (Other)
  Sender: FDA-Public Use
  Company Number: 2011PROUSA00429

PATIENT
  Sex: Male

DRUGS (2)
  1. PROVENGE [Suspect]
     Dosage: REGIMEN # 2  250 ML, SINGLE, INTRAVENOUS
     Route: 042
     Dates: start: 20110617, end: 20110617
  2. PROVENGE [Suspect]
     Indication: PROSTATE CANCER METASTATIC
     Dosage: 250 ML, SINGLE, INTRAVENOUS
     Route: 042
     Dates: start: 20110603, end: 20110603

REACTIONS (1)
  - TRANSIENT ISCHAEMIC ATTACK [None]
